FAERS Safety Report 5794113-X (Version None)
Quarter: 2008Q2

REPORT INFORMATION
  Report Type: 
  Country: None (occurrence: None)
  Receive Date: 20080627
  Receipt Date: 20080616
  Transmission Date: 20081010
  Serious: Yes (Other)
  Sender: FDA-Public Use
  Company Number: US-PFIZER INC-2008050598

PATIENT
  Sex: Male
  Weight: 102 kg

DRUGS (10)
  1. CHANTIX [Suspect]
     Indication: SMOKING CESSATION THERAPY
  2. PALIPERIDONE [Concomitant]
  3. METFORMIN HCL [Concomitant]
  4. GLIPIZIDE [Concomitant]
  5. LISINOPRIL [Concomitant]
  6. SIMVASTATIN [Concomitant]
  7. TRAZODONE HCL [Concomitant]
  8. HYDROCODONE [Concomitant]
  9. CLONAZEPAM [Concomitant]
  10. DEPAKOTE [Concomitant]

REACTIONS (5)
  - DEPRESSION [None]
  - FATIGUE [None]
  - INSOMNIA [None]
  - MEDICATION ERROR [None]
  - SOMNOLENCE [None]
